FAERS Safety Report 11185189 (Version 1)
Quarter: 2015Q2

REPORT INFORMATION
  Report Type: Spontaneous
  Country: AU (occurrence: AU)
  Receive Date: 20150612
  Receipt Date: 20150612
  Transmission Date: 20150821
  Serious: Yes (Life-Threatening)
  Sender: FDA-Public Use
  Company Number: AU-ASTRAZENECA-2015SE57125

PATIENT
  Age: 23 Year
  Sex: Male

DRUGS (4)
  1. QUETIAPINE [Suspect]
     Active Substance: QUETIAPINE
     Indication: BIPOLAR DISORDER
     Route: 048
  2. NON-TOULENE SOLVENTS [Suspect]
     Active Substance: UNSPECIFIED INGREDIENT
     Route: 065
  3. AMPHETAMINES [Suspect]
     Active Substance: AMPHETAMINE
     Route: 065
  4. MIRTAZAPINE. [Suspect]
     Active Substance: MIRTAZAPINE
     Indication: BIPOLAR DISORDER
     Route: 065

REACTIONS (4)
  - Toxic leukoencephalopathy [Recovering/Resolving]
  - Rhabdomyolysis [None]
  - Pneumonia aspiration [None]
  - Compartment syndrome [None]
